FAERS Safety Report 4338890-3 (Version None)
Quarter: 2004Q2

REPORT INFORMATION
  Report Type: 
  Country: None (occurrence: None)
  Receive Date: 20040409
  Receipt Date: 20040325
  Transmission Date: 20050107
  Serious: Yes (Other)
  Sender: FDA-Public Use
  Company Number: 200410200BFR

PATIENT
  Age: 44 Year
  Sex: Male

DRUGS (3)
  1. CIPROFLOXACIN [Suspect]
     Indication: MOUTH CYST
     Dosage: 1 G, TOTAL DAILY, ORAL
     Route: 048
     Dates: start: 20040101, end: 20040108
  2. VALIUM [Concomitant]
  3. CORTISONE [Concomitant]

REACTIONS (8)
  - LESION OF SCIATIC NERVE [None]
  - MOVEMENT DISORDER [None]
  - MUSCLE CONTRACTURE [None]
  - MUSCLE CRAMP [None]
  - PAIN [None]
  - PAIN IN EXTREMITY [None]
  - PARAESTHESIA [None]
  - PERONEAL NERVE PALSY [None]
